FAERS Safety Report 8508152-9 (Version None)
Quarter: 2012Q2

REPORT INFORMATION
  Report Type: 
  Country: None (occurrence: None)
  Receive Date: 20120405
  Receipt Date: 20090610
  Transmission Date: 20120825
  Serious: Yes (Other)
  Sender: FDA-Public Use
  Company Number: PHEH2009US03914

PATIENT
  Sex: Female

DRUGS (4)
  1. RECLAST [Suspect]
     Dosage: INFUSION
     Dates: start: 20090414, end: 20090414
  2. ACETAMINOPHEN [Concomitant]
  3. NEXIUM [Concomitant]
  4. CLARITIN [Concomitant]

REACTIONS (2)
  - PAIN IN JAW [None]
  - TOOTH EXTRACTION [None]
